FAERS Safety Report 23836876 (Version 1)
Quarter: 2024Q2

REPORT INFORMATION
  Report Type: Spontaneous
  Country: TW (occurrence: TW)
  Receive Date: 20240509
  Receipt Date: 20240509
  Transmission Date: 20240716
  Serious: Yes (Death, Other)
  Sender: FDA-Public Use
  Company Number: TW-009507513-2405TWN001412

PATIENT
  Age: 71 Year
  Sex: Female
  Weight: 65 kg

DRUGS (4)
  1. POSACONAZOLE [Suspect]
     Active Substance: POSACONAZOLE
     Indication: Fungal infection
     Dosage: 300 MILLIGRAM, QD
     Route: 048
     Dates: start: 20240313, end: 20240318
  2. CYTARABINE [Suspect]
     Active Substance: CYTARABINE
     Indication: Acute myeloid leukaemia
     Dosage: UNK
     Dates: start: 20240307
  3. IDARUBICIN [Suspect]
     Active Substance: IDARUBICIN
     Indication: Acute myeloid leukaemia
     Dosage: 2 DAYS
     Dates: start: 20240307
  4. PIPERACILLIN AND TAZOBACTAM [Concomitant]
     Active Substance: PIPERACILLIN SODIUM\TAZOBACTAM SODIUM

REACTIONS (8)
  - Acute myeloid leukaemia [Fatal]
  - Hepatic failure [Fatal]
  - Hyperbilirubinaemia [Fatal]
  - Gallbladder enlargement [Unknown]
  - Pancytopenia [Unknown]
  - Fatigue [Unknown]
  - Blepharal pigmentation [Unknown]
  - Ammonia increased [Unknown]

NARRATIVE: CASE EVENT DATE: 20240318
